FAERS Safety Report 8423966-1 (Version None)
Quarter: 2012Q2

REPORT INFORMATION
  Report Type: 
  Country: None (occurrence: None)
  Receive Date: 20120608
  Receipt Date: 20120529
  Transmission Date: 20120825
  Serious: Yes (Other)
  Sender: FDA-Public Use
  Company Number: US-ELI_LILLY_AND_COMPANY-US201205010071

PATIENT
  Sex: Female

DRUGS (3)
  1. INSULIN [Concomitant]
     Indication: DIABETES MELLITUS
     Dosage: UNK
  2. DRUG USED IN DIABETES [Concomitant]
     Indication: DIABETES MELLITUS
  3. BYETTA [Suspect]
     Indication: INSULIN-REQUIRING TYPE 2 DIABETES MELLITUS
     Dosage: 10 UG, UNKNOWN
     Route: 058
     Dates: start: 20070101

REACTIONS (3)
  - OFF LABEL USE [None]
  - BLOOD GLUCOSE INCREASED [None]
  - UNDERDOSE [None]
